FAERS Safety Report 20031510 (Version 2)
Quarter: 2021Q4

REPORT INFORMATION
  Report Type: Report from Study
  Country: TR (occurrence: TR)
  Receive Date: 20211103
  Receipt Date: 20211110
  Transmission Date: 20220303
  Serious: Yes (Other)
  Sender: FDA-Public Use
  Company Number: TR-ABBVIE-21K-161-4138155-00

PATIENT
  Sex: Female

DRUGS (2)
  1. CARBIDOPA\LEVODOPA [Suspect]
     Active Substance: CARBIDOPA\LEVODOPA
     Indication: Parkinson^s disease
     Dosage: MORNING DOSE (ML): 2.50 CONTINIOUS DOSE (ML): 2.80 EXTRA DOSE (ML): 2.00
     Route: 050
     Dates: start: 20140121, end: 20211027
  2. CARBIDOPA\LEVODOPA [Suspect]
     Active Substance: CARBIDOPA\LEVODOPA
     Dosage: MORNING DOSE (ML): 2.50 CONTINIOUS DOSE (ML): 2.80 EXTRA DOSE (ML): 2.00
     Route: 050
     Dates: start: 20211105

REACTIONS (2)
  - Embedded device [Recovered/Resolved]
  - Oxygen saturation decreased [Recovered/Resolved]

NARRATIVE: CASE EVENT DATE: 20211026
